FAERS Safety Report 5943370-5 (Version None)
Quarter: 2008Q4

REPORT INFORMATION
  Report Type: 
  Country: None (occurrence: None)
  Receive Date: 20081106
  Receipt Date: 20081103
  Transmission Date: 20090506
  Serious: Yes (Hospitalization)
  Sender: FDA-Public Use
  Company Number: IE-BRISTOL-MYERS SQUIBB COMPANY-14344022

PATIENT
  Age: 59 Year
  Sex: Female

DRUGS (10)
  1. CISPLATIN [Suspect]
     Indication: BREAST CANCER METASTATIC
     Route: 042
     Dates: start: 20080904
  2. DEXAMETHASONE [Suspect]
     Indication: MALAISE
     Route: 048
     Dates: start: 20080905, end: 20080906
  3. EMEND [Concomitant]
     Indication: MALAISE
     Dosage: 125MG(04SEP08);80MG(05-06SEP08)
     Route: 048
     Dates: start: 20080904, end: 20080906
  4. MOTILIUM [Concomitant]
     Indication: MALAISE
     Route: 048
     Dates: start: 20080905, end: 20080908
  5. CIPRAMIL [Concomitant]
     Indication: DEPRESSION
     Route: 048
     Dates: start: 20080829
  6. LACTULOSE [Concomitant]
     Indication: CONSTIPATION
  7. SENNA [Concomitant]
     Indication: CONSTIPATION
  8. CORSODYL [Concomitant]
     Indication: DENTAL DISORDER PROPHYLAXIS
     Route: 048
     Dates: start: 20080904
  9. MYCOSTATIN [Concomitant]
     Indication: DENTAL DISORDER PROPHYLAXIS
     Route: 048
     Dates: start: 20080904
  10. INEGY [Concomitant]
     Indication: HYPERCHOLESTEROLAEMIA
     Dosage: 1 DOSAGE FORM=10MG/40MG
     Route: 048

REACTIONS (1)
  - DEEP VEIN THROMBOSIS [None]
